FAERS Safety Report 16527246 (Version 4)
Quarter: 2019Q3

REPORT INFORMATION
  Report Type: Spontaneous
  Country: ES (occurrence: ES)
  Receive Date: 20190703
  Receipt Date: 20190822
  Transmission Date: 20191004
  Serious: Yes (Other)
  Sender: FDA-Public Use
  Company Number: ES-MYLANLABS-2019M1040230

PATIENT
  Age: 26 Year
  Sex: Male

DRUGS (5)
  1. FOLIC ACID. [Concomitant]
     Active Substance: FOLIC ACID
     Indication: PRODUCT USED FOR UNKNOWN INDICATION
     Dosage: 1 DOSAGE FORM, QD(1 DOSAGE FORMS DAILY; 1 PILL EVERY 24HOURS)
     Route: 048
  2. METHYLPREDNISOLONE. [Suspect]
     Active Substance: METHYLPREDNISOLONE
     Indication: PRODUCT USED FOR UNKNOWN INDICATION
     Dosage: 10 MILLIGRAM, QD (20 MILLIGRAM DAILY; EVERY 12HOURS)
     Route: 048
  3. HIDROPOLIVIT                       /07504101/ [Concomitant]
     Indication: PRODUCT USED FOR UNKNOWN INDICATION
     Dosage: 2 DOSAGE FORM, QD(2 DOSAGE FORMS DAILY; EVERY 12 HOURS)
     Route: 048
  4. METHYLPREDNISOLONE. [Suspect]
     Active Substance: METHYLPREDNISOLONE
     Dosage: 10 MILLIGRAM, BID (20 MILLIGRAM DAILY; EVERY 12HOURS)
     Route: 048
  5. TACROLIMUS. [Suspect]
     Active Substance: TACROLIMUS
     Indication: STEM CELL TRANSPLANT
     Dosage: 1.5 MILLIGRAM, BID
     Route: 048

REACTIONS (3)
  - Product use in unapproved indication [Unknown]
  - Herpes simplex [Recovered/Resolved with Sequelae]
  - Thrombocytopenia [Recovered/Resolved]
